FAERS Safety Report 8367149-2 (Version None)
Quarter: 2012Q1

REPORT INFORMATION
  Report Type: 
  Country: None (occurrence: None)
  Receive Date: 20120323
  Receipt Date: 20111020
  Transmission Date: 20120608
  Serious: Yes (Hospitalization)
  Sender: FDA-Public Use
  Company Number: 163-21880-11073353

PATIENT
  Age: 82 Year
  Sex: Female
  Weight: 58.0604 kg

DRUGS (12)
  1. FOLIC ACID [Concomitant]
  2. ASPIRIN [Concomitant]
  3. MULTIVITAMIN [Concomitant]
  4. ALPRAZOLAM [Concomitant]
  5. PLAVIX [Concomitant]
  6. SERTRALINE HYDROCHLORIDE [Concomitant]
  7. CALCIUM/D (CALCIUM WITH VITAMIN D) [Concomitant]
  8. AMLODIPINE [Concomitant]
  9. ATENOLOL [Concomitant]
  10. REVLIMID [Suspect]
     Indication: MYELODYSPLASTIC SYNDROME
     Dosage: 10 MG, 1 IN 1 D, PO
     Route: 048
     Dates: start: 20110630, end: 20110912
  11. REVLIMID [Suspect]
     Indication: ACUTE MYELOID LEUKAEMIA
     Dosage: 10 MG, 1 IN 1 D, PO
     Route: 048
     Dates: start: 20110630, end: 20110912
  12. FISH OIL (FISH OIL) [Concomitant]

REACTIONS (3)
  - HEADACHE [None]
  - CONFUSIONAL STATE [None]
  - BODY TEMPERATURE INCREASED [None]
